FAERS Safety Report 8283185-9 (Version None)
Quarter: 2012Q2

REPORT INFORMATION
  Report Type: 
  Country: None (occurrence: None)
  Receive Date: 20120413
  Receipt Date: 20120404
  Transmission Date: 20120825
  Serious: Yes (Disabling)
  Sender: FDA-Public Use
  Company Number: SE-ASTRAZENECA-2012SE22270

PATIENT
  Age: 20370 Day
  Sex: Male

DRUGS (1)
  1. XYLOCAINE [Suspect]
     Route: 065
     Dates: end: 20100628

REACTIONS (1)
  - VISUAL IMPAIRMENT [None]
